FAERS Safety Report 12290400 (Version 1)
Quarter: 2016Q2

REPORT INFORMATION
  Report Type: Spontaneous
  Country: US (occurrence: US)
  Receive Date: 20160421
  Receipt Date: 20160421
  Transmission Date: 20160815
  Serious: No
  Sender: FDA-Public Use
  Company Number: US-TEVA-647328ACC

PATIENT
  Sex: Female

DRUGS (1)
  1. PLAN B ONE-STEP [Suspect]
     Active Substance: LEVONORGESTREL
     Indication: POST COITAL CONTRACEPTION
     Route: 065
     Dates: start: 201603

REACTIONS (5)
  - Vulvovaginal pruritus [Not Recovered/Not Resolved]
  - Vaginal haemorrhage [Recovered/Resolved]
  - Vaginal inflammation [Not Recovered/Not Resolved]
  - Vulvovaginal erythema [Not Recovered/Not Resolved]
  - Vaginal discharge [Not Recovered/Not Resolved]
